FAERS Safety Report 6902470-3 (Version None)
Quarter: 2010Q3

REPORT INFORMATION
  Report Type: 
  Country: None (occurrence: None)
  Receive Date: 20100802
  Receipt Date: 20100802
  Transmission Date: 20110219
  Serious: Yes (Hospitalization)
  Sender: FDA-Public Use
  Company Number: None

PATIENT
  Sex: Male
  Weight: 108.6 kg

DRUGS (22)
  1. ALIMTA [Suspect]
     Dosage: 500MG/M2 Q 21 DAYS 042
     Dates: start: 20100622
  2. ALIMTA [Suspect]
     Dosage: 500MG/M2 Q 21 DAYS 042
     Dates: start: 20100713
  3. GEMZAR [Suspect]
     Indication: NON-SMALL CELL LUNG CANCER
     Dosage: 1250MG/M2 Q 21 DAYS + DAY 8 042
     Dates: start: 20100622
  4. GEMZAR [Suspect]
     Indication: NON-SMALL CELL LUNG CANCER
     Dosage: 1250MG/M2 Q 21 DAYS + DAY 8 042
     Dates: start: 20100713
  5. LACTULOSE [Concomitant]
  6. SODIUM BICARBONATE [Concomitant]
  7. RIFAXIMIN [Concomitant]
  8. RAMIPRIL [Concomitant]
  9. RAMIPRIL [Concomitant]
  10. AMLODIPINE [Concomitant]
  11. VYTORIN [Concomitant]
  12. CARVEDILOL [Concomitant]
  13. WARFARIN SODIUM [Concomitant]
  14. KEFLEX [Concomitant]
  15. SODIUM CITRATE [Concomitant]
  16. VANCOMYCIN [Concomitant]
  17. SIMVASTATIN [Concomitant]
  18. EZETIMIBE [Concomitant]
  19. FUROSEMIDE [Concomitant]
  20. PANTOPRAZOLE [Concomitant]
  21. CEFTAZIDIME [Concomitant]
  22. ACETAMINOPHEN [Concomitant]

REACTIONS (2)
  - PNEUMONIA [None]
  - PNEUMONITIS [None]
